FAERS Safety Report 5534346-0 (Version None)
Quarter: 2007Q4

REPORT INFORMATION
  Report Type: 
  Country: None (occurrence: None)
  Receive Date: 20071130
  Receipt Date: 20071119
  Transmission Date: 20080405
  Serious: Yes (Life-Threatening, Hospitalization)
  Sender: FDA-Public Use
  Company Number: 02100-JPN-07-0686

PATIENT
  Age: 86 Year
  Sex: Male

DRUGS (6)
  1. CILOSTAZOL [Suspect]
     Indication: ARTERIOSCLEROSIS OBLITERANS
     Dosage: 200 MG ORAL
     Route: 048
     Dates: start: 20060510
  2. MOSAPRIDE CITRATE [Concomitant]
  3. AMLODIPINE BESYLATE [Concomitant]
  4. TELMISARTAN [Concomitant]
  5. AMLODIPINE BESYLATE [Concomitant]
  6. MAGNESIUM OXIDE [Concomitant]

REACTIONS (2)
  - CEREBRAL HAEMORRHAGE [None]
  - PNEUMONIA ASPIRATION [None]
